FAERS Safety Report 21878263 (Version 1)
Quarter: 2023Q1

REPORT INFORMATION
  Report Type: Spontaneous
  Country: CA (occurrence: CA)
  Receive Date: 20230118
  Receipt Date: 20230118
  Transmission Date: 20230418
  Serious: Yes (Death)
  Sender: FDA-Public Use
  Company Number: CA-MALLINCKRODT-T202300167

PATIENT
  Age: 36 Week

DRUGS (5)
  1. INOMAX [Suspect]
     Active Substance: NITRIC OXIDE
     Indication: Oxygen saturation decreased
     Dosage: 20 PPM, INHALATION
     Route: 055
     Dates: start: 20221227, end: 20221227
  2. INOMAX [Suspect]
     Active Substance: NITRIC OXIDE
     Indication: Sepsis
     Dosage: LESS THAN 30PPM SET AT 40PPM, INHALATION
     Route: 055
     Dates: start: 20221227, end: 20221227
  3. VASOPRESSIN [Concomitant]
     Active Substance: VASOPRESSIN
     Indication: Product used for unknown indication
     Dosage: UNK
     Route: 065
  4. EPINEPHRINE [Concomitant]
     Active Substance: EPINEPHRINE
     Indication: Product used for unknown indication
     Dosage: UNK
     Route: 065
  5. NOREPINEPHRINE [Concomitant]
     Active Substance: NOREPINEPHRINE
     Indication: Product used for unknown indication
     Dosage: UNK
     Route: 065

REACTIONS (4)
  - Oxygen saturation decreased [Fatal]
  - Sepsis [Fatal]
  - Therapy non-responder [Unknown]
  - Product use in unapproved indication [Unknown]

NARRATIVE: CASE EVENT DATE: 20221227
